FAERS Safety Report 14778336 (Version 2)
Quarter: 2018Q2

REPORT INFORMATION
  Report Type: Spontaneous
  Country: US (occurrence: US)
  Receive Date: 20180419
  Receipt Date: 20180428
  Transmission Date: 20180711
  Serious: Yes (Hospitalization, Other)
  Sender: FDA-Public Use
  Company Number: PHEH2018US014817

PATIENT
  Age: 57 Year
  Sex: Female

DRUGS (3)
  1. COSENTYX [Suspect]
     Active Substance: SECUKINUMAB
     Indication: JOINT EFFUSION
  2. COSENTYX [Suspect]
     Active Substance: SECUKINUMAB
     Indication: DACTYLITIS
  3. COSENTYX [Suspect]
     Active Substance: SECUKINUMAB
     Indication: ARTHROPATHY
     Dosage: 150 MG, QW
     Route: 058
     Dates: start: 20171116, end: 20180216

REACTIONS (4)
  - Colitis ulcerative [Recovering/Resolving]
  - Product use in unapproved indication [Unknown]
  - Diarrhoea [Recovering/Resolving]
  - Abdominal pain [Recovering/Resolving]

NARRATIVE: CASE EVENT DATE: 20171116
